FAERS Safety Report 6163669-X (Version None)
Quarter: 2009Q2

REPORT INFORMATION
  Report Type: 
  Country: None (occurrence: None)
  Receive Date: 20090422
  Receipt Date: 20090408
  Transmission Date: 20091009
  Serious: Yes (Hospitalization, Other)
  Sender: FDA-Public Use
  Company Number: US-ROCHE-552265

PATIENT
  Sex: Male
  Weight: 77.1 kg

DRUGS (7)
  1. ACCUTANE [Suspect]
     Indication: ACNE
     Dosage: OTHER INDICATION: ROSACEA
     Route: 065
     Dates: start: 19920217, end: 19920715
  2. ACCUTANE [Suspect]
     Route: 065
     Dates: start: 19990914, end: 19991214
  3. ACCUTANE [Suspect]
     Route: 065
  4. BACTROBAN [Concomitant]
     Dosage: DOSE 15 GRAM X 5
     Dates: start: 19991012
  5. FLAGYL [Concomitant]
     Dosage: NOTE STATED HE WAS TAKING CONCOMITTANTLY DURING SECOND COURSE OF THERAPY(NO DATES PROVIDED)
  6. ASPIRIN [Concomitant]
  7. ARISTOCORT [Concomitant]
     Dates: start: 19920318

REACTIONS (12)
  - ACNE [None]
  - ANAL STENOSIS [None]
  - COLITIS [None]
  - COLITIS ULCERATIVE [None]
  - CROHN'S DISEASE [None]
  - DEPRESSION [None]
  - INFLAMMATORY BOWEL DISEASE [None]
  - INTERVERTEBRAL DISC DEGENERATION [None]
  - IRON DEFICIENCY ANAEMIA [None]
  - POUCHITIS [None]
  - PROCTITIS [None]
  - RASH [None]
